FAERS Safety Report 5167235-4 (Version None)
Quarter: 2006Q4

REPORT INFORMATION
  Report Type: 
  Country: None (occurrence: None)
  Receive Date: 20061129
  Receipt Date: 20061114
  Transmission Date: 20070319
  Serious: No
  Sender: FDA-Public Use
  Company Number: 36984

PATIENT
  Sex: Male

DRUGS (2)
  1. TIMOLOL MALEATE [Suspect]
     Indication: HERPES ZOSTER
     Dates: start: 20050105, end: 20060111
  2. PREDNISOLONE [Suspect]
     Dates: start: 20050106, end: 20050111

REACTIONS (3)
  - BLINDNESS [None]
  - BLOOD PHOSPHORUS INCREASED [None]
  - CORNEAL DEPOSITS [None]
